FAERS Safety Report 7434131-9 (Version None)
Quarter: 2011Q2

REPORT INFORMATION
  Report Type: 
  Country: None (occurrence: None)
  Receive Date: 20110425
  Receipt Date: 20110418
  Transmission Date: 20111010
  Serious: No
  Sender: FDA-Public Use
  Company Number: US-PFIZER INC-2011084512

PATIENT
  Sex: Female

DRUGS (2)
  1. CELEXA [Suspect]
     Dosage: UNK
     Dates: end: 20110415
  2. PRISTIQ [Suspect]
     Dosage: 50 MG, 1X/DAY
     Dates: start: 20110415

REACTIONS (2)
  - DIZZINESS [None]
  - INSOMNIA [None]
